FAERS Safety Report 23608617 (Version 3)
Quarter: 2024Q1

REPORT INFORMATION
  Report Type: Spontaneous
  Country: US (occurrence: US)
  Receive Date: 20240308
  Receipt Date: 20240330
  Transmission Date: 20240410
  Serious: No
  Sender: FDA-Public Use
  Company Number: US-AMGEN-USASP2024045319

PATIENT
  Age: 71 Year
  Sex: Female

DRUGS (13)
  1. TAVNEOS [Suspect]
     Active Substance: AVACOPAN
     Indication: Granulomatosis with polyangiitis
     Dosage: 30 MILLIGRAM, BID ( (TAKE 3 CAPSULES (30 MG) BY MOUTH TWICE DAILY WITH FOOD))
     Route: 048
     Dates: start: 202403
  2. TAVNEOS [Suspect]
     Active Substance: AVACOPAN
     Dosage: 3 DOSAGE FORM, BID (10 MG CAPSULES, 3 CAPSULES TWICE DAY)
     Route: 048
     Dates: start: 20240304
  3. TRAMADOL [Concomitant]
     Active Substance: TRAMADOL\TRAMADOL HYDROCHLORIDE
  4. VITAMIN D3 [Concomitant]
     Active Substance: CHOLECALCIFEROL
  5. GABAPENTIN [Concomitant]
     Active Substance: GABAPENTIN
  6. AMITRIPTYLINE [Concomitant]
     Active Substance: AMITRIPTYLINE
  7. DULOXETINE [Concomitant]
     Active Substance: DULOXETINE
  8. EXCEDRIN [Concomitant]
     Active Substance: ACETAMINOPHEN\ASPIRIN\CAFFEINE
  9. CARAFATE [Concomitant]
     Active Substance: SUCRALFATE
  10. METFORMIN [Concomitant]
     Active Substance: METFORMIN HYDROCHLORIDE
  11. PANTOPRAZOLE [Concomitant]
     Active Substance: PANTOPRAZOLE
  12. REPAGLINIDE [Concomitant]
     Active Substance: REPAGLINIDE
  13. SULFAMETHOXAZOLE\TRIMETHOPRIM [Concomitant]
     Active Substance: SULFAMETHOXAZOLE\TRIMETHOPRIM

REACTIONS (4)
  - Heart rate increased [Unknown]
  - Product use complaint [Unknown]
  - Diarrhoea [Unknown]
  - Fatigue [Unknown]

NARRATIVE: CASE EVENT DATE: 20240301
